FAERS Safety Report 23634677 (Version 7)
Quarter: 2024Q2

REPORT INFORMATION
  Report Type: Report from Study
  Country: IT (occurrence: IT)
  Receive Date: 20240315
  Receipt Date: 20240611
  Transmission Date: 20240716
  Serious: Yes (Congenital Anomaly, Other)
  Sender: FDA-Public Use
  Company Number: IT-ROCHE-3275721

PATIENT
  Age: 62 Year
  Sex: Female
  Weight: 53 kg

DRUGS (32)
  1. TRASTUZUMAB [Suspect]
     Active Substance: TRASTUZUMAB
     Indication: HER2 positive breast cancer
     Dosage: 416 MILLIGRAM, Q3WK INTRAVENOUS (NOT OTHERWISE SPECIFIED)MOST RECENT DOSE PRIOR TO THE EVENT: 27/OCT
     Route: 042
     Dates: start: 20190104, end: 20190104
  2. TRASTUZUMAB [Suspect]
     Active Substance: TRASTUZUMAB
     Indication: Breast cancer
     Dosage: 6 MILLIGRAM/KILOGRAM, Q3WK,, INTRAVENOUS (NOT OTHERWISE SPECIFIED)
     Route: 042
     Dates: start: 20190125, end: 20220826
  3. ENHERTU [Suspect]
     Active Substance: FAM-TRASTUZUMAB DERUXTECAN-NXKI
     Indication: HER2 positive breast cancer
     Dosage: 270 MILLIGRAM, Q3WK
     Route: 042
     Dates: start: 20221006
  4. ENHERTU [Suspect]
     Active Substance: FAM-TRASTUZUMAB DERUXTECAN-NXKI
     Indication: Breast cancer
  5. ARIMIDEX [Suspect]
     Active Substance: ANASTROZOLE
     Indication: HER2 positive breast cancer
     Dosage: 1 MILLIGRAM, QD, MOST RECENT DOSE PRIOR TO THE EVENT: 27/NOV/2021
     Route: 048
     Dates: start: 20190628
  6. ARIMIDEX [Suspect]
     Active Substance: ANASTROZOLE
     Indication: Breast cancer
  7. ARIMIDEX [Suspect]
     Active Substance: ANASTROZOLE
     Indication: Hypertension
  8. AROMASIN [Suspect]
     Active Substance: EXEMESTANE
     Indication: HER2 positive breast cancer
     Dosage: 25 MILLIGRAM, QD, MOST RECENT DOSE 26/NOV/2021
     Route: 048
     Dates: start: 20210924
  9. AROMASIN [Suspect]
     Active Substance: EXEMESTANE
     Indication: Breast cancer
  10. PERTUZUMAB [Suspect]
     Active Substance: PERTUZUMAB
     Indication: HER2 positive breast cancer
     Dosage: 840 MILLIGRAM, Q3WK
     Route: 042
     Dates: start: 20190104, end: 20190104
  11. PERTUZUMAB [Suspect]
     Active Substance: PERTUZUMAB
     Indication: Breast cancer
     Dosage: 420 MILLIGRAM, Q3WK
     Route: 042
     Dates: start: 20190125
  12. TAXOL [Suspect]
     Active Substance: PACLITAXEL
     Indication: HER2 positive breast cancer
     Dosage: 120 MILLIGRAM, QWK, CUMULATIVE DOSE 3000 MG
     Route: 042
     Dates: start: 20190104, end: 20190621
  13. TAXOL [Suspect]
     Active Substance: PACLITAXEL
     Indication: Breast cancer
  14. LAMIVUDINE [Concomitant]
     Active Substance: LAMIVUDINE
     Indication: Product used for unknown indication
     Dosage: 100 MILLIGRAM, QD
     Route: 065
  15. GRANISETRONE [Concomitant]
     Indication: Product used for unknown indication
     Dosage: 1 MG, ONCE EVERY 1 WK
     Route: 065
     Dates: start: 20190104, end: 20190621
  16. METHYLPREDNISOLONE [Concomitant]
     Active Substance: METHYLPREDNISOLONE
     Indication: Premedication
     Dosage: 125 MG, ONCE EVERY 3 WK
     Route: 065
     Dates: start: 20200508, end: 20220426
  17. METHYLPREDNISOLONE [Concomitant]
     Active Substance: METHYLPREDNISOLONE
     Indication: Product used for unknown indication
  18. METOPROLOL [Concomitant]
     Active Substance: METOPROLOL
     Indication: Hypertension
     Dosage: 25 MILLIGRAM, BID
     Dates: start: 20200829
  19. PANTOPRAZOLE SODIUM [Concomitant]
     Active Substance: PANTOPRAZOLE SODIUM
     Indication: Product used for unknown indication
     Dosage: 20 MG, QD
     Route: 065
  20. CHLORPHENIRAMINE MALEATE [Concomitant]
     Active Substance: CHLORPHENIRAMINE MALEATE
     Indication: Product used for unknown indication
     Dosage: 10 MG, ONCE EVERY 1 WK
     Route: 065
     Dates: start: 20190104, end: 20190621
  21. CHLORPHENIRAMINE MALEATE [Concomitant]
     Active Substance: CHLORPHENIRAMINE MALEATE
     Dosage: 10 MG, ONCE EVERY 3 WK
     Route: 065
     Dates: start: 20190719
  22. ANASTROZOLE [Concomitant]
     Active Substance: ANASTROZOLE
     Indication: Hypertension
     Dosage: 1 MG
     Route: 065
     Dates: start: 20211125
  23. ZOLEDRONIC ACID [Concomitant]
     Active Substance: ZOLEDRONIC ACID
     Indication: Metastases to bone
     Dosage: 4 MILLIGRAM, Q3MO
     Route: 065
  24. ZOLEDRONIC ACID [Concomitant]
     Active Substance: ZOLEDRONIC ACID
     Dosage: 4 MILLIGRAM, QMO
     Route: 065
  25. METOCLOPRAMIDE [Concomitant]
     Active Substance: METOCLOPRAMIDE
     Indication: Prophylaxis
     Dosage: 10 MILLIGRAM, QD
     Dates: start: 20221117
  26. LOSARTAN [Concomitant]
     Active Substance: LOSARTAN
     Dosage: 50 MILLIGRAM, QD
     Dates: start: 20210329
  27. DEXAMETHASONE SODIUM PHOSPHATE [Concomitant]
     Active Substance: DEXAMETHASONE PHOSPHATE\DEXAMETHASONE SODIUM PHOSPHATE
     Indication: Premedication
     Dosage: 10 MILLIGRAM, Q3WK
     Dates: start: 20191122, end: 20200306
  28. MODURETIC 5-50 [Concomitant]
     Active Substance: AMILORIDE HYDROCHLORIDE\HYDROCHLOROTHIAZIDE
     Dosage: 5 MILLIGRAM, QOD
     Dates: start: 20190829
  29. ASPIRIN [Concomitant]
     Active Substance: ASPIRIN
     Indication: Prophylaxis
     Dosage: 100 MILLIGRAM, QD
     Dates: start: 20211125
  30. PREDNISONE [Concomitant]
     Active Substance: PREDNISONE
     Dosage: 5 MILLIGRAM, QD
     Dates: start: 20190829
  31. AMOXICILLIN\CLAVULANATE POTASSIUM [Concomitant]
     Active Substance: AMOXICILLIN\CLAVULANATE POTASSIUM
     Indication: Influenza
     Dosage: 125 MILLIGRAM, BID
     Dates: start: 20221130, end: 20221206
  32. NORVASC [Concomitant]
     Active Substance: AMLODIPINE BESYLATE
     Dosage: 5 MILLIGRAM, QD
     Dates: start: 20190829

REACTIONS (4)
  - Toxicity to various agents [Recovered/Resolved]
  - Nausea [Recovered/Resolved]
  - Asthenia [Recovered/Resolved]
  - Eastern Cooperative Oncology Group performance status worsened [Not Recovered/Not Resolved]

NARRATIVE: CASE EVENT DATE: 20221027
